FAERS Safety Report 9340287 (Version 3)
Quarter: 2014Q3

REPORT INFORMATION
  Report Type: Spontaneous
  Country: US (occurrence: US)
  Receive Date: 20130610
  Receipt Date: 20140924
  Transmission Date: 20150326
  Serious: Yes (Death, Other)
  Sender: FDA-Public Use
  Company Number: US-ASTELLAS-2013US005273

PATIENT
  Age: 73 Year
  Sex: Male

DRUGS (1)
  1. XTANDI [Suspect]
     Active Substance: ENZALUTAMIDE
     Indication: PROSTATE CANCER
     Route: 048
     Dates: start: 20130108, end: 20140414

REACTIONS (6)
  - Asthenia [Recovering/Resolving]
  - Burning sensation [Unknown]
  - Foreign body [Unknown]
  - Fatigue [Recovering/Resolving]
  - Wound [Fatal]
  - Product physical issue [Unknown]

NARRATIVE: CASE EVENT DATE: 201301
